FAERS Safety Report 9016061 (Version 4)
Quarter: 2013Q1

REPORT INFORMATION
  Report Type: Spontaneous
  Country: US (occurrence: US)
  Receive Date: 20130116
  Receipt Date: 20130304
  Transmission Date: 20140127
  Serious: No
  Sender: FDA-Public Use
  Company Number: US-TEVA-380567USA

PATIENT
  Age: 87 Year
  Sex: Male
  Weight: 72.64 kg

DRUGS (2)
  1. PROAIR HFA [Suspect]
     Indication: RESPIRATORY DISORDER
     Route: 055
  2. COUMADIN [Concomitant]
     Dosage: 2.5 MILLIGRAM DAILY;
     Route: 048

REACTIONS (4)
  - Injury corneal [Recovered/Resolved]
  - Ocular hyperaemia [Recovered/Resolved]
  - Eye irritation [Not Recovered/Not Resolved]
  - Incorrect route of drug administration [Unknown]
